FAERS Safety Report 4587925-1 (Version None)
Quarter: 2005Q1

REPORT INFORMATION
  Report Type: 
  Country: None (occurrence: None)
  Receive Date: 20050215
  Receipt Date: 20050204
  Transmission Date: 20050727
  Serious: Yes (Hospitalization, Other)
  Sender: FDA-Public Use
  Company Number: 2005006325

PATIENT
  Age: 45 Year
  Sex: Male

DRUGS (6)
  1. AZITHROMYCIN [Suspect]
     Indication: PYREXIA
     Dosage: 500 MG (500 MG, 1 IN 1 D), ORAL
     Route: 048
     Dates: start: 20041217, end: 20041218
  2. PIPERACILLIN SODIUM [Suspect]
     Indication: NASOPHARYNGEAL DISORDER
     Dosage: 1 GRAM (1 GRAM, 1 IN 1 D), INTRAVENOUS
     Route: 042
     Dates: start: 20041218, end: 20041218
  3. CEFAZOLIN SODIUM [Suspect]
     Indication: PYREXIA
     Dosage: INTRAVENOUS
     Route: 042
     Dates: start: 20041214
  4. CEFPODOXIME PROXETIL [Suspect]
     Indication: PYREXIA
     Dosage: 200 MG (100 MG, 2 IN 1 D), ORAL
     Route: 048
     Dates: start: 20041214, end: 20041216
  5. OSELTAMIVIR (OSELTAMIVIR) [Suspect]
     Indication: PYREXIA
     Dosage: 150 MG (75 MG, 2 IN 1 D), ORAL
     Route: 048
     Dates: start: 20041215, end: 20041218
  6. DICLOFENAC SODIUM [Concomitant]

REACTIONS (9)
  - BLOOD CHLORIDE DECREASED [None]
  - BLOOD SODIUM DECREASED [None]
  - COLON NEOPLASM [None]
  - DIARRHOEA [None]
  - GASTROINTESTINAL PERFORATION [None]
  - INFLUENZA [None]
  - LARGE INTESTINAL ULCER [None]
  - ORAL INTAKE REDUCED [None]
  - PERITONITIS [None]
